FAERS Safety Report 5275079-8 (Version None)
Quarter: 2007Q1

REPORT INFORMATION
  Report Type: 
  Country: None (occurrence: None)
  Receive Date: 20070326
  Receipt Date: 20070315
  Transmission Date: 20070707
  Serious: Yes (Disabling)
  Sender: FDA-Public Use
  Company Number: CH-JNJFOC-20070204111

PATIENT
  Age: 6 Decade
  Sex: Female

DRUGS (7)
  1. HALDOL SOLUTAB [Suspect]
     Route: 048
  2. HALDOL SOLUTAB [Suspect]
     Indication: DRUG USE FOR UNKNOWN INDICATION
     Route: 048
  3. ZYPREXA [Concomitant]
     Route: 048
  4. ZYPREXA [Concomitant]
     Route: 048
  5. ZYPREXA [Concomitant]
     Indication: DRUG USE FOR UNKNOWN INDICATION
     Route: 048
  6. LORAZEPAM [Concomitant]
     Route: 048
  7. LORAZEPAM [Concomitant]
     Indication: DRUG USE FOR UNKNOWN INDICATION
     Route: 048

REACTIONS (1)
  - PLEUROTHOTONUS [None]
